FAERS Safety Report 6011973-8 (Version None)
Quarter: 2008Q4

REPORT INFORMATION
  Report Type: 
  Country: None (occurrence: None)
  Receive Date: 20081218
  Receipt Date: 20081014
  Transmission Date: 20090506
  Serious: No
  Sender: FDA-Public Use
  Company Number: US-ASTRAZENECA-2008UW22892

PATIENT
  Age: 65 Year
  Sex: Male

DRUGS (5)
  1. CRESTOR [Suspect]
     Route: 048
  2. CYMBALTA [Concomitant]
  3. SYNTHROID [Concomitant]
  4. FLEXERIL [Concomitant]
  5. FIORINAL [Concomitant]

REACTIONS (5)
  - ABDOMINAL DISCOMFORT [None]
  - FLUSHING [None]
  - HYPOGLYCAEMIA [None]
  - NAUSEA [None]
  - VOMITING [None]
